FAERS Safety Report 18458149 (Version 1)
Quarter: 2020Q4

REPORT INFORMATION
  Report Type: Other
  Country: US (occurrence: NL)
  Receive Date: 20201103
  Receipt Date: 20201103
  Transmission Date: 20210114
  Serious: Yes (Hospitalization, Other)
  Sender: FDA-Public Use
  Company Number: NL-BRECKENRIDGE PHARMACEUTICAL, INC.-2093549

PATIENT
  Age: 77 Year
  Sex: Female

DRUGS (2)
  1. METHYLPHENIDATE. [Concomitant]
     Active Substance: METHYLPHENIDATE
  2. DULOXETINE. [Suspect]
     Active Substance: DULOXETINE
     Indication: ARTHRITIS

REACTIONS (4)
  - Withdrawal syndrome [None]
  - Dry mouth [None]
  - Narcolepsy [None]
  - Cataplexy [None]
